FAERS Safety Report 9335291 (Version 1)
Quarter: 2013Q2

REPORT INFORMATION
  Report Type: Spontaneous
  Country: US (occurrence: US)
  Receive Date: 20130606
  Receipt Date: 20130606
  Transmission Date: 20140414
  Serious: No
  Sender: FDA-Public Use
  Company Number: US-PFIZER INC-2013166947

PATIENT
  Age: 71 Year
  Sex: Female
  Weight: 77.1 kg

DRUGS (10)
  1. SOMAVERT [Suspect]
     Dosage: 20 MG, 1X/DAY
     Route: 058
     Dates: start: 200809
  2. SOMAVERT [Suspect]
     Dosage: 20 MG, ALTERNATE DAY
     Route: 058
     Dates: start: 201209
  3. SOMAVERT [Suspect]
     Dosage: 20 MG, EVERY THIRD DAY
     Route: 058
     Dates: start: 201302
  4. SOMAVERT [Suspect]
     Dosage: ALTERNATE DAY
  5. FIBERCON [Concomitant]
     Dosage: 625 MG, UNK
  6. COD-LIVER OIL [Concomitant]
     Dosage: UNK
  7. ASPIRIN [Concomitant]
     Dosage: 325 MG, UNK
  8. PROBIOTICS [Concomitant]
  9. VITAMIN D [Concomitant]
     Dosage: 1000 IU, UNK
  10. CALCIUM + D [Concomitant]

REACTIONS (2)
  - Hot flush [Unknown]
  - Insulin-like growth factor increased [Unknown]
